FAERS Safety Report 9088491 (Version 1)
Quarter: 2013Q1

REPORT INFORMATION
  Report Type: Spontaneous
  Country: FR (occurrence: FR)
  Receive Date: 20130218
  Receipt Date: 20130218
  Transmission Date: 20140127
  Serious: Yes (Other)
  Sender: FDA-Public Use
  Company Number: FR-BRISTOL-MYERS SQUIBB COMPANY-17370123

PATIENT
  Age: 61 Year
  Sex: Female

DRUGS (5)
  1. ABILIFY [Suspect]
     Indication: BIPOLAR DISORDER
     Dosage: REDUCED TO 5MG
     Dates: start: 20121010
  2. ZYPREXA [Suspect]
     Indication: BIPOLAR DISORDER
  3. TERCIAN [Suspect]
  4. TERALITHE [Suspect]
  5. LEXOMIL [Suspect]

REACTIONS (8)
  - Gait disturbance [Recovering/Resolving]
  - Speech disorder [Recovering/Resolving]
  - Disorientation [Recovering/Resolving]
  - Cogwheel rigidity [Unknown]
  - Micrographia [Unknown]
  - Masked facies [Unknown]
  - Fear of falling [Unknown]
  - Pain in extremity [Unknown]
